FAERS Safety Report 11275148 (Version 2)
Quarter: 2015Q3

REPORT INFORMATION
  Report Type: Spontaneous
  Country: RO (occurrence: RO)
  Receive Date: 20150716
  Receipt Date: 20150812
  Transmission Date: 20151125
  Serious: Yes (Other)
  Sender: FDA-Public Use
  Company Number: RO-AMGEN-ROUSP2015070498

PATIENT
  Age: 60 Year
  Sex: Male

DRUGS (1)
  1. ENBREL [Suspect]
     Active Substance: ETANERCEPT
     Indication: ANKYLOSING SPONDYLITIS
     Dosage: UNK
     Route: 065
     Dates: start: 201001, end: 201501

REACTIONS (4)
  - Colon cancer [Not Recovered/Not Resolved]
  - Metastases to liver [Unknown]
  - Haematochezia [Not Recovered/Not Resolved]
  - Metastases to lung [Unknown]

NARRATIVE: CASE EVENT DATE: 201501
